FAERS Safety Report 4777373-3 (Version None)
Quarter: 2005Q3

REPORT INFORMATION
  Report Type: 
  Country: None (occurrence: None)
  Receive Date: 20050915
  Receipt Date: 20050906
  Transmission Date: 20060218
  Serious: Yes (Other)
  Sender: FDA-Public Use
  Company Number: 2005125096

PATIENT
  Age: 47 Year
  Sex: Male
  Weight: 99.3377 kg

DRUGS (4)
  1. NARDIL [Suspect]
     Indication: DEPRESSION
     Dosage: 120 MG (15 MG, 2 IN 1 D)
  2. PROSCAR [Concomitant]
  3. CLONAZEPAM [Concomitant]
  4. FLURAZEPAM [Concomitant]

REACTIONS (11)
  - FATIGUE [None]
  - FEELING ABNORMAL [None]
  - FEELING HOT [None]
  - HEADACHE [None]
  - HEART RATE INCREASED [None]
  - HYPERHIDROSIS [None]
  - INCORRECT DOSE ADMINISTERED [None]
  - PSYCHOMOTOR HYPERACTIVITY [None]
  - STRESS [None]
  - TOOTH ABSCESS [None]
  - WEIGHT DECREASED [None]
